FAERS Safety Report 9342265 (Version 1)
Quarter: 2013Q2

REPORT INFORMATION
  Report Type: Spontaneous
  Country: NO (occurrence: None)
  Receive Date: 20130607
  Receipt Date: 20130607
  Transmission Date: 20140414
  Serious: Yes (Hospitalization)
  Sender: FDA-Public Use
  Company Number: 2013-2002

PATIENT
  Sex: Female

DRUGS (1)
  1. AZZALURE (BOTULINUM TOXIN TYPE A) (BOTULINUM TOXIN TYPE A) [Suspect]
     Indication: SKIN WRINKLING
     Dosage: NOT REPORTED (1 IN 1 CYCLE (S) ) UNK
     Dates: start: 2013, end: 2013

REACTIONS (3)
  - Facial pain [None]
  - Vision blurred [None]
  - Headache [None]
